FAERS Safety Report 8586900-X (Version None)
Quarter: 2012Q3

REPORT INFORMATION
  Report Type: 
  Country: None (occurrence: None)
  Receive Date: 20120810
  Receipt Date: 20120802
  Transmission Date: 20120928
  Serious: Yes (Other)
  Sender: FDA-Public Use
  Company Number: CA-ABBOTT-12P-028-0963591-00

PATIENT
  Age: 29 Year
  Sex: Male

DRUGS (3)
  1. FLUTICASONE PROPIONATE [Interacting]
     Indication: PRODUCT USED FOR UNKNOWN INDICATION
     Route: 055
  2. BIAXIN [Suspect]
     Indication: PRODUCT USED FOR UNKNOWN INDICATION
     Dosage: 1.0
     Route: 065
  3. PREDNISONE TAB [Concomitant]
     Indication: PRODUCT USED FOR UNKNOWN INDICATION
     Route: 065

REACTIONS (4)
  - DRUG INTERACTION [None]
  - OBSTRUCTIVE AIRWAYS DISORDER [None]
  - DIZZINESS [None]
  - CHEST PAIN [None]
